FAERS Safety Report 6762557-5 (Version None)
Quarter: 2010Q2

REPORT INFORMATION
  Report Type: 
  Country: None (occurrence: None)
  Receive Date: 20100609
  Receipt Date: 20100527
  Transmission Date: 20101027
  Serious: Yes (Other)
  Sender: FDA-Public Use
  Company Number: JP-PFIZER INC-2010061576

PATIENT
  Age: 41 Year
  Sex: Female
  Weight: 50 kg

DRUGS (5)
  1. CHAMPIX [Suspect]
     Indication: NICOTINE DEPENDENCE
     Dosage: 0.5 MG, 1X/DAY
     Route: 048
     Dates: start: 20100412, end: 20100414
  2. CHAMPIX [Suspect]
     Dosage: 0.5 MG, 2X/DAY
     Route: 048
     Dates: start: 20100415, end: 20100418
  3. CHAMPIX [Suspect]
     Dosage: 1 MG, 2X/DAY
     Route: 048
     Dates: start: 20100419, end: 20100511
  4. CHAMPIX [Suspect]
     Dosage: UNK
     Dates: start: 20100511
  5. GANATON [Concomitant]
     Dosage: 50 MG, 3X/DAY
     Route: 048
     Dates: start: 20100412, end: 20100511

REACTIONS (6)
  - AMNESIA [None]
  - DIZZINESS [None]
  - FEELING ABNORMAL [None]
  - MALAISE [None]
  - ROAD TRAFFIC ACCIDENT [None]
  - SOMNOLENCE [None]
